FAERS Safety Report 9277384 (Version 1)
Quarter: 2013Q2

REPORT INFORMATION
  Report Type: Spontaneous
  Country: US (occurrence: None)
  Receive Date: 20130506
  Receipt Date: 20130506
  Transmission Date: 20140414
  Serious: Yes (Death, Life-Threatening, Hospitalization)
  Sender: FDA-Public Use
  Company Number: None

PATIENT
  Age: 90 Year
  Sex: Male
  Weight: 55 kg

DRUGS (10)
  1. ERBITUX [Suspect]
     Indication: SQUAMOUS CELL CARCINOMA OF SKIN
     Dosage: 656 MG ONCE IV?FROM 12:45 TO 15:10
     Route: 042
     Dates: start: 20130227
  2. ERBITUX [Suspect]
     Indication: SKIN CANCER METASTATIC
     Dosage: 656 MG ONCE IV?FROM 12:45 TO 15:10
     Route: 042
     Dates: start: 20130227
  3. CRANBERRY EXTRACT [Concomitant]
  4. TUMS [Concomitant]
  5. MIRALAX [Concomitant]
  6. ZOCOR [Concomitant]
  7. ASPIRIN [Concomitant]
  8. PEPCID [Concomitant]
  9. COLACE [Concomitant]
  10. MULTIVITAMINS WITH MINERALS [Concomitant]

REACTIONS (5)
  - Fall [None]
  - Cerebral infarction [None]
  - Chills [None]
  - Vomiting [None]
  - Pulmonary embolism [None]
